FAERS Safety Report 5787627-X (Version None)
Quarter: 2008Q2

REPORT INFORMATION
  Report Type: 
  Country: None (occurrence: None)
  Receive Date: 20080625
  Receipt Date: 20071029
  Transmission Date: 20081010
  Serious: No
  Sender: FDA-Public Use
  Company Number: US-ASTRAZENECA-2007UW25046

PATIENT
  Age: 76 Year
  Sex: Female
  Weight: 60.8 kg

DRUGS (12)
  1. PULMICORT FLEXHALER [Suspect]
     Indication: CHRONIC OBSTRUCTIVE PULMONARY DISEASE
     Dosage: 2 PUFFS TWICE DAILY
     Route: 055
  2. ALBUTEROL [Concomitant]
     Route: 055
  3. SEREVENT [Concomitant]
     Dosage: 1 PUFF TWICE DAILY
     Route: 055
  4. XANAX [Concomitant]
     Route: 048
  5. DUONEB [Concomitant]
  6. PRILOSEC [Concomitant]
     Route: 048
  7. FOSAMAX [Concomitant]
  8. ALTOPREV [Concomitant]
  9. LISINOPRIL AND HYDROCHLOROTHIAZIDE [Concomitant]
     Dosage: 20/25 MG
     Route: 048
  10. REMERON [Concomitant]
  11. OSCAL [Concomitant]
  12. CENTRUM SILVER [Concomitant]
     Route: 048

REACTIONS (2)
  - DYSPHONIA [None]
  - PHARYNGOLARYNGEAL PAIN [None]
